FAERS Safety Report 21987403 (Version 1)
Quarter: 2023Q1

REPORT INFORMATION
  Report Type: Spontaneous
  Country: GB (occurrence: GB)
  Receive Date: 20230214
  Receipt Date: 20230214
  Transmission Date: 20230417
  Serious: Yes (Other)
  Sender: FDA-Public Use
  Company Number: None

PATIENT
  Age: 88 Year
  Sex: Female
  Weight: 58 kg

DRUGS (10)
  1. CEPHALEXIN [Suspect]
     Active Substance: CEPHALEXIN
     Indication: Product used for unknown indication
     Dosage: 500 MILLIGRAM (CAPSULE)
     Route: 065
     Dates: start: 20220912
  2. ALENDRONIC ACID [Concomitant]
     Active Substance: ALENDRONIC ACID
     Indication: Product used for unknown indication
     Dosage: 1 DOSAGE FORM, ONCE WEEKLY (ON THE SAME DAY EACH WEEK. TAKE) UNCOATED TABLET
     Route: 048
     Dates: start: 20220503
  3. CALCIUM CARBONATE\CHOLECALCIFEROL [Concomitant]
     Active Substance: CALCIUM CARBONATE\CHOLECALCIFEROL
     Indication: Product used for unknown indication
     Dosage: 1 DOSAGE FORM, QD (UNCOATED TABLET) CAN BE SUCKED OR CHEWED
     Route: 048
     Dates: start: 20220503
  4. CODEINE PHOSPHATE [Concomitant]
     Active Substance: CODEINE PHOSPHATE
     Indication: Product used for unknown indication
     Dosage: UNK (UNCOATED TABLET) ONE OR TWO TABLETS TO BE TAKEN FOUR TO SIX HOUR
     Route: 048
     Dates: start: 20220503
  5. CARBOXYMETHYLCELLULOSE [Concomitant]
     Active Substance: CARBOXYMETHYLCELLULOSE
     Indication: Product used for unknown indication
     Dosage: 4 DROP, 1 HOUR (EVOLVE) USE TWO INTO BOTH EYES FOR 2 MONTHS
     Dates: start: 20220503
  6. FEXOFENADINE [Concomitant]
     Active Substance: FEXOFENADINE HYDROCHLORIDE
     Indication: Product used for unknown indication
     Dosage: 1 DOSAGE FORM, QD (UNCOATED TABLET), TAKE ONE TABLET DAILY
     Route: 048
     Dates: start: 20220912
  7. INDAPAMIDE [Concomitant]
     Active Substance: INDAPAMIDE
     Indication: Product used for unknown indication
     Dosage: 1 DOSAGE FORM, QD (EACH MORNING)
     Route: 065
     Dates: start: 20220503
  8. MIRTAZAPINE [Concomitant]
     Active Substance: MIRTAZAPINE
     Indication: Product used for unknown indication
     Dosage: 1 DOSAGE FORM, HS (AT NIGHT)
     Route: 065
     Dates: start: 20220503
  9. NITROFURANTOIN [Concomitant]
     Active Substance: NITROFURANTOIN
     Indication: Urinary tract infection
     Dosage: 2 DOSAGE FORM, QD
     Route: 065
     Dates: start: 20220912, end: 20220915
  10. ACETAMINOPHEN [Concomitant]
     Active Substance: ACETAMINOPHEN
     Indication: Product used for unknown indication
     Dosage: 8 DOSAGE FORM, QD (UNCOATED TABLET)
     Route: 048
     Dates: start: 20220503

REACTIONS (1)
  - Rash [Unknown]

NARRATIVE: CASE EVENT DATE: 20220912
